FAERS Safety Report 16044386 (Version 1)
Quarter: 2019Q1

REPORT INFORMATION
  Report Type: Spontaneous
  Country: NO (occurrence: NO)
  Receive Date: 20190306
  Receipt Date: 20190306
  Transmission Date: 20190418
  Serious: Yes (Death, Life-Threatening, Hospitalization, Disabling, Other)
  Sender: FDA-Public Use
  Company Number: NO-ALLERGAN-1908346US

PATIENT
  Sex: Female

DRUGS (3)
  1. ALBYL-E [Interacting]
     Active Substance: ASPIRIN\MAGNESIUM OXIDE
     Indication: PROPHYLAXIS
     Dosage: 75 MG, QD (1 TBL (75 MG) X1 DAGLIG)
     Route: 048
     Dates: start: 20180502, end: 20190209
  2. ESCITALOPRAM OXALATE - BP [Suspect]
     Active Substance: ESCITALOPRAM OXALATE
     Indication: DEPRESSION
     Dosage: 5 MG, QD (5 MG (1 TBL) X1 DAGLIG)
     Route: 048
     Dates: start: 20180913, end: 20190209
  3. ELIQUIS [Interacting]
     Active Substance: APIXABAN
     Indication: PRODUCT USED FOR UNKNOWN INDICATION
     Dosage: 5 MG, Q12H (5 MG (1 TBL) X1 DAGLIG)
     Route: 048
     Dates: start: 20180514, end: 20190209

REACTIONS (1)
  - Cerebral haemorrhage [Fatal]

NARRATIVE: CASE EVENT DATE: 20190209
